FAERS Safety Report 17265776 (Version 5)
Quarter: 2021Q1

REPORT INFORMATION
  Report Type: Spontaneous
  Country: AU (occurrence: AU)
  Receive Date: 20200114
  Receipt Date: 20210122
  Transmission Date: 20210419
  Serious: Yes (Life-Threatening, Hospitalization, Disabling, Other)
  Sender: FDA-Public Use
  Company Number: AU-SA-2019SA351849

PATIENT
  Age: 57 Year
  Sex: Male
  Weight: 75 kg

DRUGS (2)
  1. ALEMTUZUMAB [Suspect]
     Active Substance: ALEMTUZUMAB
     Indication: MULTIPLE SCLEROSIS
     Dosage: 12 MG, QD
     Route: 041
     Dates: start: 20190716, end: 20190718
  2. ALEMTUZUMAB [Suspect]
     Active Substance: ALEMTUZUMAB
     Dosage: 12 MG, QD
     Route: 041
     Dates: start: 20180716, end: 20180720

REACTIONS (14)
  - Odynophagia [Recovering/Resolving]
  - Increased tendency to bruise [Unknown]
  - Pain in jaw [Recovering/Resolving]
  - Fungal infection [Recovering/Resolving]
  - Oropharyngeal pain [Recovering/Resolving]
  - Petechiae [Unknown]
  - Asthenia [Unknown]
  - Neutropenia [Recovering/Resolving]
  - Ear pain [Recovering/Resolving]
  - Epistaxis [Unknown]
  - Platelet count decreased [Recovered/Resolved]
  - Otitis media [Recovering/Resolving]
  - Thrombocytopenia [Recovering/Resolving]
  - Pneumocystis jirovecii pneumonia [Recovering/Resolving]

NARRATIVE: CASE EVENT DATE: 20201009
